FAERS Safety Report 5587174-4 (Version None)
Quarter: 2008Q1

REPORT INFORMATION
  Report Type: 
  Country: None (occurrence: None)
  Receive Date: 20080110
  Receipt Date: 20080103
  Transmission Date: 20080703
  Serious: Yes (Death)
  Sender: FDA-Public Use
  Company Number: GB-PFIZER INC-2008001464

PATIENT
  Age: 55 Year
  Sex: Female

DRUGS (2)
  1. EXUBERA [Suspect]
     Indication: DIABETES MELLITUS
     Route: 055
  2. DRUG, UNSPECIFIED [Concomitant]

REACTIONS (1)
  - EMBOLISM [None]
